FAERS Safety Report 5371019-1 (Version None)
Quarter: 2007Q2

REPORT INFORMATION
  Report Type: 
  Country: None (occurrence: None)
  Receive Date: 20070626
  Receipt Date: 20070614
  Transmission Date: 20071010
  Serious: Yes (Other)
  Sender: FDA-Public Use
  Company Number: US-PFIZER INC-2007049048

PATIENT

DRUGS (1)
  1. DILANTIN [Suspect]
     Indication: CONVULSION
     Dosage: TEXT:200MG IN AM AND 300MG IN PM

REACTIONS (2)
  - ANTICONVULSANT DRUG LEVEL ABNORMAL [None]
  - FISTULA [None]
